FAERS Safety Report 21771950 (Version 1)
Quarter: 2022Q4

REPORT INFORMATION
  Report Type: Spontaneous
  Country: US (occurrence: US)
  Receive Date: 20221223
  Receipt Date: 20221223
  Transmission Date: 20230113
  Serious: Yes (Other)
  Sender: FDA-Public Use
  Company Number: US-SUN PHARMACEUTICAL INDUSTRIES LTD-2022R1-370246

PATIENT
  Sex: Female

DRUGS (6)
  1. DOXYCYCLINE [Suspect]
     Active Substance: DOXYCYCLINE
     Indication: Neuralgia
     Dosage: UNK
     Route: 065
  2. OMEGA 3 [Suspect]
     Active Substance: CAPSAICIN
     Indication: Neuralgia
     Dosage: UNK
     Route: 065
  3. TETRACYCLINE [Suspect]
     Active Substance: TETRACYCLINE
     Indication: Neuralgia
     Dosage: UNK
     Route: 065
  4. CYCLOSPORINE [Suspect]
     Active Substance: CYCLOSPORINE
     Indication: Neuralgia
     Dosage: UNK
     Route: 065
  5. MURO 128 [Suspect]
     Active Substance: SODIUM CHLORIDE
     Indication: Neuralgia
     Dosage: UNK
     Route: 065
  6. VITAMIN A [Suspect]
     Active Substance: VITAMIN A
     Indication: Neuralgia
     Dosage: UNK
     Route: 065

REACTIONS (1)
  - Treatment failure [Unknown]
